FAERS Safety Report 12548621 (Version 1)
Quarter: 2016Q3

REPORT INFORMATION
  Report Type: Spontaneous
  Country: US (occurrence: US)
  Receive Date: 20160712
  Receipt Date: 20160712
  Transmission Date: 20161109
  Serious: Yes (Other)
  Sender: FDA-Public Use
  Company Number: US-TEVA-594027USA

PATIENT
  Sex: Female

DRUGS (4)
  1. LAMICTAL [Concomitant]
     Active Substance: LAMOTRIGINE
     Indication: SEIZURE
  2. LISINOPRIL. [Concomitant]
     Active Substance: LISINOPRIL
  3. VERAPAMIL [Concomitant]
     Active Substance: VERAPAMIL HYDROCHLORIDE
  4. LAMOTRIGINE. [Suspect]
     Active Substance: LAMOTRIGINE
     Indication: SEIZURE
     Route: 065

REACTIONS (2)
  - Seizure [Unknown]
  - Drug intolerance [Unknown]
